FAERS Safety Report 23027751 (Version 1)
Quarter: 2023Q4

REPORT INFORMATION
  Report Type: Spontaneous
  Country: US (occurrence: US)
  Receive Date: 20231004
  Receipt Date: 20231004
  Transmission Date: 20240110
  Serious: No
  Sender: FDA-Public Use
  Company Number: US-BAYER-2023A133462

PATIENT

DRUGS (2)
  1. ALEVE [Suspect]
     Active Substance: NAPROXEN SODIUM
     Indication: Swelling
  2. ALEVE [Suspect]
     Active Substance: NAPROXEN SODIUM
     Indication: Pain

REACTIONS (1)
  - Drug effective for unapproved indication [Unknown]
